FAERS Safety Report 5077498-1 (Version None)
Quarter: 2006Q3

REPORT INFORMATION
  Report Type: 
  Country: None (occurrence: None)
  Receive Date: 20060810
  Receipt Date: 20060314
  Transmission Date: 20061208
  Serious: No
  Sender: FDA-Public Use
  Company Number: US-GLAXOSMITHKLINE-A0597853A

PATIENT
  Age: 76 Year
  Sex: Male

DRUGS (3)
  1. PAXIL [Suspect]
     Indication: DRUG USE FOR UNKNOWN INDICATION
     Dosage: 10MG PER DAY
     Route: 048
     Dates: start: 20040901
  2. LIPITOR [Concomitant]
     Dosage: 10MG ALTERNATE DAYS
  3. CENTRUM [Concomitant]

REACTIONS (2)
  - BALANCE DISORDER [None]
  - TREMOR [None]
